FAERS Safety Report 26150566 (Version 1)
Quarter: 2025Q4

REPORT INFORMATION
  Report Type: Spontaneous
  Country: TW (occurrence: TW)
  Receive Date: 20251212
  Receipt Date: 20251212
  Transmission Date: 20260117
  Serious: Yes (Death, Other)
  Sender: AMGEN
  Company Number: TW-AMGEN-TWNSP2025243385

PATIENT

DRUGS (2)
  1. BEVACIZUMAB [Suspect]
     Active Substance: BEVACIZUMAB
     Indication: Hepatocellular carcinoma
     Dosage: 500 MILLIGRAM, Q3WK
     Route: 040
  2. ATEZOLIZUMAB [Suspect]
     Active Substance: ATEZOLIZUMAB
     Indication: Hepatocellular carcinoma
     Dosage: 1200 MILLIGRAM, Q3WK
     Route: 040

REACTIONS (19)
  - Death [Fatal]
  - Thrombocytopenia [Unknown]
  - Upper gastrointestinal haemorrhage [Unknown]
  - Hepatocellular carcinoma [Unknown]
  - Jaundice cholestatic [Unknown]
  - Intestinal ulcer [Unknown]
  - Aspartate aminotransferase increased [Unknown]
  - Alanine aminotransferase increased [Unknown]
  - Blood bilirubin increased [Unknown]
  - Fatigue [Unknown]
  - Proteinuria [Unknown]
  - Hypertension [Unknown]
  - Decreased appetite [Unknown]
  - Rash [Unknown]
  - Diarrhoea [Unknown]
  - Drug effective for unapproved indication [Unknown]
  - Drug ineffective for unapproved indication [Unknown]
  - Therapy cessation [Unknown]
  - Off label use [Unknown]
